FAERS Safety Report 16654577 (Version 2)
Quarter: 2019Q3

REPORT INFORMATION
  Report Type: Spontaneous
  Country: FR (occurrence: FR)
  Receive Date: 20190801
  Receipt Date: 20190906
  Transmission Date: 20191004
  Serious: Yes (Hospitalization, Other)
  Sender: FDA-Public Use
  Company Number: FR-AUROBINDO-AUR-APL-2019-042770

PATIENT

DRUGS (13)
  1. ONDANSETRON ARROW ORODISPERSIBLE TABLET 8MG [Suspect]
     Active Substance: ONDANSETRON
     Indication: NAUSEA
     Dosage: 8 MILLIGRAM, 1 TOTAL
     Route: 048
     Dates: start: 20190517
  2. METOCLOPRAMIDE. [Suspect]
     Active Substance: METOCLOPRAMIDE
     Indication: NAUSEA
     Dosage: 1 DOSAGE FORM, AS NECESSARY
     Route: 042
     Dates: start: 20190517
  3. AMOXICILLINE/ACIDE CLAVULANIQUE PANPHARMA [Suspect]
     Active Substance: AMOXICILLIN\CLAVULANIC ACID
     Indication: ERYSIPELAS
     Dosage: 3 DOSAGE FORM, ONCE A DAY
     Route: 042
     Dates: start: 20190518
  4. AMOXICILLINE PANPHARMA [Suspect]
     Active Substance: AMOXICILLIN
     Indication: ERYSIPELAS
     Dosage: 6 GRAM, ONCE A DAY
     Route: 042
     Dates: start: 20190520
  5. ESIDREX [Suspect]
     Active Substance: HYDROCHLOROTHIAZIDE
     Indication: HYPERTENSION
     Dosage: 12.5 MILLIGRAM, ONCE A DAY
     Route: 048
     Dates: start: 20190518
  6. LERCANIDIPINE MYLAN [Suspect]
     Active Substance: LERCANIDIPINE
     Indication: HYPERTENSION
     Dosage: 10 MILLIGRAM, ONCE A DAY
     Route: 048
     Dates: start: 20190517
  7. CONTRAMAL [Suspect]
     Active Substance: TRAMADOL HYDROCHLORIDE
     Indication: PAIN
     Dosage: 150 MILLIGRAM, ONCE A DAY
     Route: 048
     Dates: start: 20190517
  8. INNOHEP [Suspect]
     Active Substance: TINZAPARIN SODIUM
     Indication: THROMBOSIS PROPHYLAXIS
     Dosage: 16000 INTERNATIONAL UNIT, ONCE A DAY
     Route: 058
     Dates: start: 20190518
  9. PARACETAMOL B BRAUN [Suspect]
     Active Substance: ACETAMINOPHEN
     Indication: PAIN
     Dosage: UNK, SI BESOIN ( A EU 2 INJ)
     Route: 042
     Dates: start: 20190517
  10. ATORVASTATINE ARROW [Concomitant]
     Active Substance: ATORVASTATIN
     Indication: HYPERCHOLESTEROLAEMIA
     Dosage: 10 MILLIGRAM, ONCE A DAY
     Route: 048
  11. PANTOPRAZOL ARROW 40 MG  POWDER FOR SOLUTION FOR INJECTION [Suspect]
     Active Substance: PANTOPRAZOLE SODIUM
     Indication: GASTROOESOPHAGEAL REFLUX DISEASE
     Dosage: UNK, SI BESOIN (RE?U 2 INJ)
     Route: 042
     Dates: start: 20190517
  12. PERINDOPRIL ARROW [Concomitant]
     Active Substance: PERINDOPRIL
     Indication: HYPERTENSION
     Dosage: 4 MILLIGRAM, ONCE A DAY
     Route: 048
  13. ATORVASTATINE ARROW [Concomitant]
     Active Substance: ATORVASTATIN
     Indication: PERIPHERAL VENOUS DISEASE

REACTIONS (2)
  - Cholestasis [Not Recovered/Not Resolved]
  - Cell death [Recovering/Resolving]

NARRATIVE: CASE EVENT DATE: 20190522
